FAERS Safety Report 20695575 (Version 3)
Quarter: 2022Q2

REPORT INFORMATION
  Report Type: Spontaneous
  Country: CN (occurrence: CN)
  Receive Date: 20220411
  Receipt Date: 20220517
  Transmission Date: 20220720
  Serious: Yes (Death, Other)
  Sender: FDA-Public Use
  Company Number: CN-TAKEDA-2022TUS023012

PATIENT
  Age: 74 Year
  Sex: Female

DRUGS (15)
  1. VELCADE [Suspect]
     Active Substance: BORTEZOMIB
     Indication: Plasma cell myeloma
     Dosage: 1.3 MILLIGRAM/SQ. METER, ON DAYS 1, 8, 15 AND 22
     Route: 065
     Dates: start: 20191230
  2. VELCADE [Suspect]
     Active Substance: BORTEZOMIB
     Dosage: BORTEZOMIB 1.3 MG/M2 ON DAYS 1, 4, 8, AND 11; CYCLICAL
     Route: 065
     Dates: start: 20200625
  3. DARZALEX [Suspect]
     Active Substance: DARATUMUMAB
     Indication: Plasma cell myeloma
     Dosage: 16 MILLIGRAM/KILOGRAM ON DAYS 1, 8, 15 AND 22
     Route: 065
     Dates: start: 20200625
  4. DOXORUBICIN HYDROCHLORIDE [Suspect]
     Active Substance: DOXORUBICIN HYDROCHLORIDE
     Indication: Plasma cell myeloma
     Dosage: 30 MILLIGRAM/SQ. METER  ON DAY 1
     Route: 065
     Dates: start: 20200625
  5. IXAZOMIB [Suspect]
     Active Substance: IXAZOMIB
     Indication: Plasma cell myeloma
     Dosage: 4 MILLIGRAM ON DAYS 1, 8, AND 15
     Route: 065
     Dates: start: 202005
  6. DEXAMETHASONE [Suspect]
     Active Substance: DEXAMETHASONE
     Indication: Plasma cell myeloma
     Dosage: 20.25 MILLIGRAM ON DAYS 1, 2, 8, 9, 15, 16, 22 AND 23
     Route: 065
     Dates: start: 20191230
  7. DEXAMETHASONE [Suspect]
     Active Substance: DEXAMETHASONE
     Indication: Chills
     Dosage: 20.25 MG ON DAYS 1, 2, 4, 5, 8,9, 11 AND 12; CYCLICAL
     Route: 065
     Dates: start: 202004
  8. DEXAMETHASONE [Suspect]
     Active Substance: DEXAMETHASONE
     Indication: Nasopharyngitis
     Dosage: 20.25 MG ON DAYS 1, 2, 8, 9, 15, 16, 22, AND 23
     Route: 065
     Dates: start: 202005
  9. DEXAMETHASONE [Suspect]
     Active Substance: DEXAMETHASONE
     Indication: Pyrexia
     Dosage: 20.25 MG ON THE DAYS 1, 2, 8, 9, 15, 16, 22 AND 23
     Route: 065
     Dates: start: 20200625
  10. DEXAMETHASONE [Suspect]
     Active Substance: DEXAMETHASONE
     Indication: Temperature intolerance
  11. LENALIDOMIDE [Suspect]
     Active Substance: LENALIDOMIDE
     Indication: Plasma cell myeloma
     Dosage: 10 MILLIGRAM FROM DAYS 1 TO 21
     Route: 065
     Dates: start: 202004
  12. METHYLPREDNISOLONE [Suspect]
     Active Substance: METHYLPREDNISOLONE
     Indication: Chills
     Route: 065
     Dates: start: 202005
  13. METHYLPREDNISOLONE [Suspect]
     Active Substance: METHYLPREDNISOLONE
     Indication: Nasopharyngitis
  14. METHYLPREDNISOLONE [Suspect]
     Active Substance: METHYLPREDNISOLONE
     Indication: Pyrexia
  15. METHYLPREDNISOLONE [Suspect]
     Active Substance: METHYLPREDNISOLONE
     Indication: Temperature intolerance

REACTIONS (5)
  - Plasma cell myeloma [Fatal]
  - Death [Fatal]
  - Treatment noncompliance [Fatal]
  - Myelosuppression [Recovering/Resolving]
  - Drug intolerance [Recovered/Resolved]

NARRATIVE: CASE EVENT DATE: 20200101
